FAERS Safety Report 5396450-X (Version None)
Quarter: 2007Q3

REPORT INFORMATION
  Report Type: 
  Country: None (occurrence: None)
  Receive Date: 20070725
  Receipt Date: 20070712
  Transmission Date: 20080115
  Serious: Yes (Hospitalization, Other)
  Sender: FDA-Public Use
  Company Number: US-ELI_LILLY_AND_COMPANY-US200704003672

PATIENT
  Age: 73 Year
  Sex: Female
  Weight: 63.492 kg

DRUGS (2)
  1. FORTEO [Suspect]
     Indication: OSTEOPOROSIS
     Dosage: UNK D/F, UNKNOWN
     Dates: start: 20060401
  2. COUMADIN [Concomitant]
     Indication: DEEP VEIN THROMBOSIS
     Dates: start: 20051101, end: 20070101

REACTIONS (4)
  - MUSCULAR WEAKNESS [None]
  - MUSCULOSKELETAL STIFFNESS [None]
  - PAIN IN EXTREMITY [None]
  - PULMONARY EMBOLISM [None]
